FAERS Safety Report 11873188 (Version 1)
Quarter: 2015Q4

REPORT INFORMATION
  Report Type: Report from Study
  Country: BR (occurrence: BR)
  Receive Date: 20151228
  Receipt Date: 20151228
  Transmission Date: 20160305
  Serious: Yes (Other)
  Sender: FDA-Public Use
  Company Number: BR-ABBVIE-15K-020-1525368-00

PATIENT
  Age: 43 Year
  Sex: Female
  Weight: 41 kg

DRUGS (5)
  1. AAS [Concomitant]
     Active Substance: ASPIRIN
     Indication: ANTICOAGULANT THERAPY
     Route: 048
     Dates: start: 2014
  2. KETOPROFEN. [Concomitant]
     Active Substance: KETOPROFEN
     Indication: RHEUMATOID ARTHRITIS
     Route: 048
     Dates: start: 201506
  3. DEFLAZACORT [Concomitant]
     Active Substance: DEFLAZACORT
     Indication: RHEUMATOID ARTHRITIS
     Route: 048
     Dates: start: 201506
  4. FAMOTIDINE. [Concomitant]
     Active Substance: FAMOTIDINE
     Indication: RHEUMATOID ARTHRITIS
     Route: 048
     Dates: start: 201506
  5. HUMIRA [Suspect]
     Active Substance: ADALIMUMAB
     Indication: RHEUMATOID ARTHRITIS
     Route: 058
     Dates: start: 20130304

REACTIONS (7)
  - Asthenia [Not Recovered/Not Resolved]
  - Chondropathy [Not Recovered/Not Resolved]
  - Weight decreased [Unknown]
  - Stroke in evolution [Recovered/Resolved]
  - Arterial occlusive disease [Unknown]
  - Venous occlusion [Unknown]
  - Fatigue [Unknown]

NARRATIVE: CASE EVENT DATE: 2014
